FAERS Safety Report 7600233-7 (Version None)
Quarter: 2011Q3

REPORT INFORMATION
  Report Type: 
  Country: None (occurrence: None)
  Receive Date: 20110711
  Receipt Date: 20110629
  Transmission Date: 20111222
  Serious: Yes (Death)
  Sender: FDA-Public Use
  Company Number: DK-SANOFI-AVENTIS-2011SA034902

PATIENT
  Age: 71 Year
  Sex: Male

DRUGS (4)
  1. MULTAQ [Suspect]
     Indication: ATRIAL FIBRILLATION
     Route: 048
     Dates: start: 20100330
  2. METOPROLOL SUCCINATE [Concomitant]
  3. WARFARIN SODIUM [Concomitant]
  4. TAMSULOSIN HCL [Concomitant]

REACTIONS (1)
  - SUDDEN DEATH [None]
